FAERS Safety Report 9387622 (Version 2)
Quarter: 2014Q1

REPORT INFORMATION
  Report Type: Spontaneous
  Country: US (occurrence: US)
  Receive Date: 20130708
  Receipt Date: 20140204
  Transmission Date: 20141002
  Serious: No
  Sender: FDA-Public Use
  Company Number: US-009507513-1307USA002494

PATIENT
  Age: 64 Year
  Sex: Female

DRUGS (7)
  1. ZEGERID OTC CAPSULES [Suspect]
     Indication: GASTROOESOPHAGEAL REFLUX DISEASE
     Dosage: UNK, QD
     Route: 048
     Dates: start: 20130420, end: 20130421
  2. ZEGERID OTC CAPSULES [Suspect]
     Indication: DYSPEPSIA
  3. PRAVASTATIN SODIUM [Concomitant]
     Indication: BLOOD CHOLESTEROL INCREASED
     Dosage: 40 MG, QD
     Dates: start: 2013
  4. LOSARTAN POTASSIUM [Concomitant]
     Indication: HYPERTENSION
     Dosage: 25 MG, QD
  5. ASPIRIN [Concomitant]
     Indication: TRANSIENT ISCHAEMIC ATTACK
     Dosage: 81 MG, QD
     Dates: start: 2011
  6. BUPROPION HYDROCHLORIDE [Concomitant]
     Indication: ANXIETY
     Dosage: 100 MG, QD
  7. PAROXETINE [Concomitant]
     Indication: ANXIETY
     Dosage: 20 MG, QD

REACTIONS (2)
  - Diarrhoea [Recovered/Resolved]
  - Psychomotor hyperactivity [Unknown]
